FAERS Safety Report 24777570 (Version 1)
Quarter: 2024Q4

REPORT INFORMATION
  Report Type: Spontaneous
  Country: FR (occurrence: FR)
  Receive Date: 20241226
  Receipt Date: 20241226
  Transmission Date: 20250114
  Serious: No
  Sender: PFIZER
  Company Number: FR-PFIZER INC-202400321071

PATIENT
  Age: 62 Year
  Sex: Male

DRUGS (1)
  1. ADALIMUMAB [Suspect]
     Active Substance: ADALIMUMAB
     Dosage: INITIALLY ONE INJECTION EVERY 2 WEEKS, THEN EVERY THREE WEEKS AND NOW ONE INJECTION PER MONTH

REACTIONS (6)
  - Injection site pain [Unknown]
  - Device leakage [Unknown]
  - Accidental exposure to product [Unknown]
  - Exposure via skin contact [Unknown]
  - Poor quality device used [Unknown]
  - Off label use [Unknown]

NARRATIVE: CASE EVENT DATE: 20241207
